FAERS Safety Report 7551219-2 (Version None)
Quarter: 2011Q2

REPORT INFORMATION
  Report Type: 
  Country: None (occurrence: None)
  Receive Date: 20110616
  Receipt Date: 20110607
  Transmission Date: 20111010
  Serious: Yes (Hospitalization)
  Sender: FDA-Public Use
  Company Number: PHFR2011GB03140

PATIENT
  Sex: Male

DRUGS (1)
  1. TEGRETOL [Suspect]
     Indication: ANXIETY
     Dosage: 3 X 400 MG DURING THE DAY, 200 MG AT NIGHT

REACTIONS (1)
  - MENTAL IMPAIRMENT [None]
